FAERS Safety Report 9726200 (Version 2)
Quarter: 2014Q2

REPORT INFORMATION
  Report Type: Spontaneous
  Country: US (occurrence: US)
  Receive Date: 20131203
  Receipt Date: 20140603
  Transmission Date: 20141212
  Serious: Yes (Hospitalization)
  Sender: FDA-Public Use
  Company Number: US-BAYER-2013-144201

PATIENT
  Age: 28 Year
  Sex: Female
  Weight: 56.69 kg

DRUGS (3)
  1. MIRENA [Suspect]
     Indication: CONTRACEPTION
     Dosage: 20 MCG/24HR, CONT
     Route: 015
     Dates: start: 20051117, end: 20090227
  2. MIRENA [Suspect]
     Indication: CONTRACEPTION
     Dosage: 20 MCG/24HR, CONT
     Route: 015
     Dates: start: 200511, end: 20090226
  3. ALBUTEROL [Concomitant]
     Indication: ASTHMA
     Dosage: UNK
     Dates: start: 200308

REACTIONS (11)
  - Uterine perforation [None]
  - Abdominal pain [None]
  - Procedural pain [None]
  - Emotional distress [None]
  - Injury [None]
  - Medical device discomfort [None]
  - Device dislocation [None]
  - Depression [None]
  - Anxiety [None]
  - Device difficult to use [None]
  - Device issue [None]
